FAERS Safety Report 6172958-4 (Version None)
Quarter: 2009Q2

REPORT INFORMATION
  Report Type: 
  Country: None (occurrence: None)
  Receive Date: 20090430
  Receipt Date: 20090424
  Transmission Date: 20091009
  Serious: Yes (Hospitalization)
  Sender: FDA-Public Use
  Company Number: JP-AVENTIS-200911083JP

PATIENT
  Age: 44 Year
  Sex: Female
  Weight: 48 kg

DRUGS (15)
  1. LASIX [Suspect]
     Route: 048
     Dates: start: 20080701
  2. SHAKUYAKUKANZOUTOU [Suspect]
     Indication: PAIN
     Dates: start: 20070801
  3. LENDORMIN [Concomitant]
     Indication: INSOMNIA
     Route: 048
     Dates: start: 20070801
  4. JUVELA                             /00110503/ [Concomitant]
     Indication: INSOMNIA
     Route: 048
     Dates: start: 20070801
  5. TAKEPRON [Concomitant]
     Route: 048
     Dates: start: 20070801
  6. COMBINATIONS OF VITAMINS [Concomitant]
     Dosage: DOSE: 1 TBLS
     Route: 048
     Dates: start: 20070801
  7. CEPHADOL [Concomitant]
     Indication: INSOMNIA
     Route: 048
     Dates: start: 20070801
  8. MERISLON [Concomitant]
     Indication: INSOMNIA
     Route: 048
     Dates: start: 20070801
  9. UBRETID [Concomitant]
     Indication: DYSURIA
     Route: 048
     Dates: start: 20070801
  10. RISUMIC [Concomitant]
     Indication: INSOMNIA
     Route: 048
     Dates: start: 20070801
  11. PYRETHIA                           /00033002/ [Concomitant]
     Indication: INSOMNIA
     Route: 048
     Dates: start: 20070801
  12. ONEALFA [Concomitant]
     Route: 048
     Dates: start: 20090301
  13. ROHYPNOL [Concomitant]
     Indication: INSOMNIA
     Dosage: DOSE: 2 TBLS
     Route: 048
     Dates: start: 20070801
  14. VEGETAMIN A [Concomitant]
     Indication: INSOMNIA
     Dosage: DOSE: 1 TBLS
     Route: 048
     Dates: start: 20070801
  15. MAGMITT [Concomitant]
     Route: 048
     Dates: start: 20090301

REACTIONS (3)
  - ANOREXIA [None]
  - DIZZINESS [None]
  - HYPOKALAEMIA [None]
